FAERS Safety Report 8247088 (Version 5)
Quarter: 2012Q4

REPORT INFORMATION
  Report Type: Report from Study
  Country: US (occurrence: US)
  Receive Date: 20111116
  Receipt Date: 20121011
  Transmission Date: 20130627
  Serious: Yes (Congenital Anomaly)
  Sender: FDA-Public Use
  Company Number: US-UCBSA-045090

PATIENT
  Sex: Male
  Weight: 9.6 kg

DRUGS (8)
  1. KEPPRA XR [Suspect]
     Indication: EPILEPSY
     Route: 064
     Dates: end: 20100121
  2. KEPPRA XR [Suspect]
     Indication: EPILEPSY
     Route: 064
     Dates: start: 2010
  3. FLINSTONE CHILDREN VITAMIN [Concomitant]
     Indication: VITAMIN SUPPLEMENTATION
     Route: 064
     Dates: start: 20100115, end: 2010
  4. FIORICET [Concomitant]
     Indication: HEADACHE
     Dosage: 50-235-40 MG PRN
     Route: 064
     Dates: start: 20100412, end: 2010
  5. MAALOX [Concomitant]
     Indication: DYSPEPSIA
     Dosage: AS NEEDED
     Route: 064
     Dates: start: 201002, end: 2010
  6. BENADRYL [Concomitant]
     Indication: SLEEP DISORDER
     Dosage: AS NEEDED
     Dates: end: 20100731
  7. MAGNESIUM CITRATE [Concomitant]
     Indication: EPILEPSY
     Route: 064
     Dates: start: 20100801, end: 2010
  8. PRENATAL VITAMINS [Concomitant]
     Indication: VITAMIN SUPPLEMENTATION
     Route: 064
     Dates: end: 201001

REACTIONS (13)
  - Umbilical hernia [Not Recovered/Not Resolved]
  - Otitis media [Unknown]
  - Torticollis [Unknown]
  - Lipoma [Unknown]
  - Rash [Unknown]
  - Cough [Unknown]
  - Rhinorrhoea [Unknown]
  - Wheezing [Unknown]
  - Haemangioma [Unknown]
  - Upper respiratory tract infection [Unknown]
  - Seasonal allergy [Unknown]
  - Cardiac murmur [Unknown]
  - Foetal exposure during pregnancy [Unknown]
